FAERS Safety Report 5803315-5 (Version None)
Quarter: 2008Q3

REPORT INFORMATION
  Report Type: 
  Country: None (occurrence: None)
  Receive Date: 20080708
  Receipt Date: 20080703
  Transmission Date: 20090109
  Serious: Yes (Hospitalization)
  Sender: FDA-Public Use
  Company Number: B0528231A

PATIENT
  Age: 38 Year
  Sex: Female

DRUGS (3)
  1. WELLBUTRIN [Suspect]
     Indication: DEPRESSION
     Route: 065
     Dates: start: 20080525
  2. BIRTH CONTROL PILL [Concomitant]
  3. KETOPROFEN [Concomitant]

REACTIONS (6)
  - ASTHENIA [None]
  - HYPOTENSION [None]
  - MYALGIA [None]
  - PUSTULAR PSORIASIS [None]
  - RASH [None]
  - TACHYCARDIA [None]
